FAERS Safety Report 15653652 (Version 1)
Quarter: 2018Q4

REPORT INFORMATION
  Report Type: Spontaneous
  Country: US (occurrence: US)
  Receive Date: 20181122
  Receipt Date: 20181122
  Transmission Date: 20190205
  Serious: No
  Sender: FDA-Public Use
  Company Number: None

PATIENT
  Age: 29 Year
  Sex: Female
  Weight: 68.85 kg

DRUGS (1)
  1. MAKENA [Suspect]
     Active Substance: HYDROXYPROGESTERONE CAPROATE
     Indication: PREMATURE LABOUR
     Dosage: ?          OTHER FREQUENCY:WEEKLY;?
     Route: 061
     Dates: start: 20181121, end: 20181122

REACTIONS (2)
  - Injection site extravasation [None]
  - Wrong technique in device usage process [None]

NARRATIVE: CASE EVENT DATE: 20181121
